FAERS Safety Report 19399449 (Version 1)
Quarter: 2021Q2

REPORT INFORMATION
  Report Type: Spontaneous
  Country: TR (occurrence: TR)
  Receive Date: 20210610
  Receipt Date: 20210610
  Transmission Date: 20210717
  Serious: Yes (Other)
  Sender: FDA-Public Use
  Company Number: TR-ASTELLAS-2021US021204

PATIENT
  Age: 39 Year
  Sex: Male

DRUGS (6)
  1. TACROLIMUS SYSTEMIC [Suspect]
     Active Substance: TACROLIMUS
     Dosage: 6 MG+6 MG, UNKNOWN FREQ.
     Route: 065
     Dates: start: 20180709, end: 20180711
  2. TACROLIMUS SYSTEMIC [Suspect]
     Active Substance: TACROLIMUS
     Indication: LIVER TRANSPLANT
     Dosage: 1 MG+1 MG, UNKNOWN FREQ.
     Route: 065
     Dates: start: 20180705, end: 20180705
  3. TACROLIMUS SYSTEMIC [Suspect]
     Active Substance: TACROLIMUS
     Dosage: 4 MG+4 MG, UNKNOWN FREQ.
     Route: 065
     Dates: start: 20180713, end: 20180723
  4. TACROLIMUS SYSTEMIC [Suspect]
     Active Substance: TACROLIMUS
     Dosage: 2 MG+2 MG, UNKNOWN FREQ.
     Route: 065
     Dates: start: 20180706, end: 20180706
  5. TACROLIMUS SYSTEMIC [Suspect]
     Active Substance: TACROLIMUS
     Dosage: 4 MG+4 MG, UNKNOWN FREQ.
     Route: 065
     Dates: start: 20180708, end: 20180708
  6. TACROLIMUS SYSTEMIC [Suspect]
     Active Substance: TACROLIMUS
     Dosage: 3 MG+3 MG, UNKNOWN FREQ.
     Route: 065
     Dates: start: 20180707, end: 20180707

REACTIONS (3)
  - Toxicity to various agents [Recovered/Resolved]
  - Neurotoxicity [Recovered/Resolved]
  - Myelitis transverse [Recovered/Resolved]

NARRATIVE: CASE EVENT DATE: 2018
